FAERS Safety Report 4703902-1 (Version None)
Quarter: 2005Q2

REPORT INFORMATION
  Report Type: 
  Country: None (occurrence: None)
  Receive Date: 20050628
  Receipt Date: 20050615
  Transmission Date: 20051028
  Serious: Yes (Hospitalization)
  Sender: FDA-Public Use
  Company Number: 2005BI011544

PATIENT
  Sex: Female

DRUGS (1)
  1. AVONEX [Suspect]
     Indication: MULTIPLE SCLEROSIS
     Dosage: IM
     Route: 030
     Dates: start: 20000503

REACTIONS (8)
  - BLADDER OPERATION [None]
  - HYSTERECTOMY [None]
  - MENSTRUAL DISORDER [None]
  - METRORRHAGIA [None]
  - MOVEMENT DISORDER [None]
  - OOPHORECTOMY [None]
  - POST PROCEDURAL HAEMORRHAGE [None]
  - UTERINE LEIOMYOMA [None]
